FAERS Safety Report 6435314-7 (Version None)
Quarter: 2009Q4

REPORT INFORMATION
  Report Type: 
  Country: None (occurrence: None)
  Receive Date: 20091110
  Receipt Date: 20091105
  Transmission Date: 20100525
  Serious: Yes (Death)
  Sender: FDA-Public Use
  Company Number: US-GENENTECH-293637

PATIENT
  Sex: Male

DRUGS (1)
  1. CATHFLO ACTIVASE [Suspect]
     Indication: MEDICAL DEVICE COMPLICATION
     Dosage: UNK
     Dates: start: 20091005

REACTIONS (2)
  - DEATH [None]
  - VENTRICULAR TACHYCARDIA [None]
